FAERS Safety Report 17028791 (Version 1)
Quarter: 2019Q4

REPORT INFORMATION
  Report Type: Spontaneous
  Country: US (occurrence: US)
  Receive Date: 20191114
  Receipt Date: 20191114
  Transmission Date: 20200122
  Serious: Yes (Other)
  Sender: FDA-Public Use
  Company Number: US-AMGEN-USASP2019184770

PATIENT
  Age: 48 Year
  Sex: Female

DRUGS (2)
  1. REMERON [Concomitant]
     Active Substance: MIRTAZAPINE
  2. PROLIA [Suspect]
     Active Substance: DENOSUMAB
     Indication: IMPAIRED GASTRIC EMPTYING
     Dosage: 60 MILLIGRAM
     Route: 065

REACTIONS (2)
  - Off label use [Unknown]
  - Impaired gastric emptying [Unknown]
